FAERS Safety Report 19910676 (Version 2)
Quarter: 2022Q3

REPORT INFORMATION
  Report Type: Spontaneous
  Country: CA (occurrence: CA)
  Receive Date: 20211004
  Receipt Date: 20220712
  Transmission Date: 20221026
  Serious: Yes (Death, Other)
  Sender: FDA-Public Use
  Company Number: CA-AUROBINDO-AUR-APL-2021-040700

PATIENT
  Age: 72 Year
  Sex: Female
  Weight: 61 kg

DRUGS (17)
  1. ONDANSETRON [Suspect]
     Active Substance: ONDANSETRON
     Indication: Product used for unknown indication
     Dosage: UNK
     Route: 065
  2. LAMOTRIGINE [Suspect]
     Active Substance: LAMOTRIGINE
     Indication: Product used for unknown indication
     Dosage: 75 MILLIGRAM, ONCE A DAY
     Route: 048
  3. BENZTROPINE [Suspect]
     Active Substance: BENZTROPINE
     Indication: Product used for unknown indication
     Dosage: 5 MILLIGRAM, TWO TIMES A DAY
     Route: 048
  4. BISACODYL [Suspect]
     Active Substance: BISACODYL
     Indication: Product used for unknown indication
     Dosage: 5 MILLIGRAM
     Route: 048
  5. BUPROPION [Suspect]
     Active Substance: BUPROPION
     Indication: Product used for unknown indication
     Dosage: 150 MILLIGRAM, ONCE A DAY
     Route: 048
  6. CLONAZEPAM [Suspect]
     Active Substance: CLONAZEPAM
     Indication: Product used for unknown indication
     Dosage: 0.25 MILLIGRAM
     Route: 048
  7. FLOVENT [Suspect]
     Active Substance: FLUTICASONE PROPIONATE
     Indication: Product used for unknown indication
     Dosage: 250 MICROGRAM, TWO TIMES A DAY
  8. LINACLOTIDE [Suspect]
     Active Substance: LINACLOTIDE
     Indication: Product used for unknown indication
     Dosage: 145 MICROGRAM, ONCE A DAY
     Route: 048
  9. POLYETHYLENE GLYCOL 3350 [Suspect]
     Active Substance: POLYETHYLENE GLYCOL 3350
     Indication: Product used for unknown indication
     Dosage: 17 GRAM, ONCE A DAY
     Route: 048
  10. MELATONIN [Suspect]
     Active Substance: MELATONIN
     Indication: Product used for unknown indication
     Dosage: 3 MILLIGRAM, ONCE A DAY
     Route: 060
  11. MELATONIN [Suspect]
     Active Substance: MELATONIN
     Indication: Product used for unknown indication
     Dosage: 3 MILLIGRAM, ONCE A DAY
     Route: 060
  12. ONDANSETRON HYDROCHLORIDE [Suspect]
     Active Substance: ONDANSETRON HYDROCHLORIDE
     Indication: Product used for unknown indication
     Dosage: 4 MILLIGRAM
     Route: 060
  13. POTASSIUM CHLORIDE [Suspect]
     Active Substance: POTASSIUM CHLORIDE
     Indication: Product used for unknown indication
     Dosage: 1.0 DOSAGE FORM, TWO TIMES A DAY
     Route: 065
  14. PREMARIN [Suspect]
     Active Substance: ESTROGENS, CONJUGATED
     Indication: Product used for unknown indication
     Dosage: 0.625 MILLIGRAM, ONCE A DAY
     Route: 067
  15. PREVACID [Suspect]
     Active Substance: LANSOPRAZOLE
     Indication: Product used for unknown indication
     Dosage: 30 MILLIGRAM, TWO TIMES A DAY
     Route: 048
  16. SODIUM CITRATE\SODIUM LAURYL SULFOACETATE [Suspect]
     Active Substance: SODIUM CITRATE\SODIUM LAURYL SULFOACETATE
     Indication: Product used for unknown indication
     Dosage: 1.0 DOSAGE FORM
     Route: 054
  17. SYNTHROID [Concomitant]
     Active Substance: LEVOTHYROXINE SODIUM
     Indication: Product used for unknown indication
     Dosage: 125 MILLIGRAM, ONCE A DAY
     Route: 048

REACTIONS (1)
  - Cardiac arrest [Fatal]
